FAERS Safety Report 11227693 (Version 1)
Quarter: 2015Q2

REPORT INFORMATION
  Report Type: Spontaneous
  Country: US (occurrence: US)
  Receive Date: 20150630
  Receipt Date: 20150630
  Transmission Date: 20150821
  Serious: Yes (Other)
  Sender: FDA-Public Use
  Company Number: US-BEH-2015051984

PATIENT
  Age: 51 Year
  Sex: Female
  Weight: 101 kg

DRUGS (1)
  1. PRIVIGEN [Suspect]
     Active Substance: HUMAN IMMUNOGLOBULIN G
     Indication: HUMORAL IMMUNE DEFECT
     Route: 042

REACTIONS (2)
  - Incision site infection [Unknown]
  - Surgery [Unknown]

NARRATIVE: CASE EVENT DATE: 20150508
